FAERS Safety Report 6908586-X (Version None)
Quarter: 2010Q3

REPORT INFORMATION
  Report Type: 
  Country: None (occurrence: None)
  Receive Date: 20100805
  Receipt Date: 20100802
  Transmission Date: 20110219
  Serious: Yes (Hospitalization)
  Sender: FDA-Public Use
  Company Number: US-MERCK-1007USA01435

PATIENT
  Age: 58 Year
  Sex: Female

DRUGS (6)
  1. COZAAR [Suspect]
     Indication: HYPERTENSION
     Route: 048
     Dates: start: 20060211, end: 20100701
  2. PROPRANOLOL HYDROCHLORIDE [Concomitant]
     Route: 065
  3. PROTONIX [Concomitant]
     Route: 065
  4. LORATADINE [Concomitant]
     Route: 065
  5. ACETAMINOPHEN [Concomitant]
     Route: 065
  6. LOSARTAN POTASSIUM [Suspect]
     Indication: HYPERTENSION
     Route: 048
     Dates: start: 20100701

REACTIONS (3)
  - DRUG INEFFECTIVE [None]
  - HEART RATE IRREGULAR [None]
  - MALAISE [None]
